FAERS Safety Report 25103028 (Version 2)
Quarter: 2025Q3

REPORT INFORMATION
  Report Type: Report from Study
  Country: EU (occurrence: EU)
  Receive Date: 20250321
  Receipt Date: 20250818
  Transmission Date: 20251021
  Serious: Yes (Death, Hospitalization, Other)
  Sender: CSL BEHRING
  Company Number: EU-BEH-2025199541

PATIENT
  Age: 65 Year
  Sex: Female

DRUGS (5)
  1. VELTASSA [Suspect]
     Active Substance: PATIROMER
     Indication: Hyperkalaemia
     Route: 065
     Dates: start: 20210111, end: 20210118
  2. VELTASSA [Suspect]
     Active Substance: PATIROMER
     Route: 065
     Dates: start: 20210119, end: 20210225
  3. VELTASSA [Suspect]
     Active Substance: PATIROMER
     Route: 065
     Dates: start: 20210226, end: 20210401
  4. VELTASSA [Suspect]
     Active Substance: PATIROMER
     Route: 065
     Dates: start: 20210402
  5. SACUBITRIL\VALSARTAN [Concomitant]
     Active Substance: SACUBITRIL\VALSARTAN
     Indication: Heart failure with reduced ejection fraction
     Dosage: 97+103 MG, BID
     Dates: start: 20200227

REACTIONS (6)
  - Death [Fatal]
  - Chronic kidney disease [Recovered/Resolved with Sequelae]
  - Nausea [Recovered/Resolved]
  - Diarrhoea [Recovered/Resolved]
  - Hyperkalaemia [Recovered/Resolved]
  - Hyperkalaemia [Recovered/Resolved]

NARRATIVE: CASE EVENT DATE: 20210101
